FAERS Safety Report 13586304 (Version 1)
Quarter: 2017Q2

REPORT INFORMATION
  Report Type: Spontaneous
  Country: US (occurrence: US)
  Receive Date: 20170526
  Receipt Date: 20170526
  Transmission Date: 20170830
  Serious: Yes (Other)
  Sender: FDA-Public Use
  Company Number: US-THE MENTHOLATUM COMPANY-2021277

PATIENT
  Age: 49 Year
  Sex: Male
  Weight: 95.46 kg

DRUGS (2)
  1. ROHTO COOL [Suspect]
     Active Substance: NAPHAZOLINE HYDROCHLORIDE\POLYSORBATE 80
     Route: 047
     Dates: start: 20170514, end: 20170515
  2. ROHTO ICE [Suspect]
     Active Substance: HYPROMELLOSES\TETRAHYDROZOLINE HYDROCHLORIDE\ZINC SULFATE
     Route: 047
     Dates: start: 20170513, end: 20170514

REACTIONS (1)
  - Photophobia [Recovering/Resolving]

NARRATIVE: CASE EVENT DATE: 20170514
